FAERS Safety Report 8479082-6 (Version None)
Quarter: 2012Q2

REPORT INFORMATION
  Report Type: 
  Country: None (occurrence: None)
  Receive Date: 20120629
  Receipt Date: 20120621
  Transmission Date: 20120825
  Serious: Yes (Other)
  Sender: FDA-Public Use
  Company Number: IT-BRISTOL-MYERS SQUIBB COMPANY-16713125

PATIENT
  Age: 71 Year
  Sex: Male

DRUGS (3)
  1. CARBOPLATIN [Concomitant]
     Dates: start: 20111124, end: 20120217
  2. ERBITUX [Suspect]
     Indication: HEAD AND NECK CANCER
     Route: 042
     Dates: start: 20111215, end: 20120305
  3. FLUOROURACIL [Concomitant]
     Dates: start: 20111124, end: 20120105

REACTIONS (1)
  - LEUKOCYTOCLASTIC VASCULITIS [None]
